FAERS Safety Report 25654298 (Version 4)
Quarter: 2025Q4

REPORT INFORMATION
  Report Type: Report from Study
  Country: JP (occurrence: JP)
  Receive Date: 20250807
  Receipt Date: 20251016
  Transmission Date: 20260118
  Serious: Yes (Hospitalization, Other)
  Sender: ROCHE
  Company Number: JP-CHUGAI-2023044332

PATIENT
  Age: 59 Year
  Sex: Male
  Weight: 76.0 kg

DRUGS (1)
  1. TECENTRIQ [Suspect]
     Active Substance: ATEZOLIZUMAB
     Indication: Non-small cell lung cancer
     Route: 042
     Dates: start: 20230808, end: 20231010

REACTIONS (4)
  - Bacteraemia [Recovering/Resolving]
  - Enterocolitis [Recovering/Resolving]
  - Lung opacity [Recovering/Resolving]
  - Infectious pleural effusion [Recovering/Resolving]

NARRATIVE: CASE EVENT DATE: 20231026
